FAERS Safety Report 16793240 (Version 1)
Quarter: 2019Q3

REPORT INFORMATION
  Report Type: Report from Study
  Country: DE (occurrence: DE)
  Receive Date: 20190911
  Receipt Date: 20190911
  Transmission Date: 20191005
  Serious: Yes (Hospitalization)
  Sender: FDA-Public Use
  Company Number: DE-AMGEN-DEUNI2018135613

PATIENT
  Age: 55 Year
  Sex: Male
  Weight: 100 kg

DRUGS (15)
  1. PANITUMUMAB [Suspect]
     Active Substance: PANITUMUMAB
     Dosage: 560 MILLIGRAM
     Route: 042
     Dates: start: 20180226
  2. PANITUMUMAB [Suspect]
     Active Substance: PANITUMUMAB
     Dosage: 580 MILLIGRAM
     Route: 042
     Dates: start: 20180508
  3. PANITUMUMAB [Suspect]
     Active Substance: PANITUMUMAB
     Dosage: 560 MILLIGRAM
     Route: 042
     Dates: start: 20180523
  4. PANTOZOL [Concomitant]
     Active Substance: PANTOPRAZOLE SODIUM
     Indication: ESSENTIAL HYPERTENSION
     Dosage: 40 MILLIGRAM, QD
     Route: 048
  5. METOPROLOL. [Concomitant]
     Active Substance: METOPROLOL
     Indication: ESSENTIAL HYPERTENSION
     Dosage: 95 MILLIGRAM, QD
     Route: 048
  6. PANITUMUMAB [Suspect]
     Active Substance: PANITUMUMAB
     Dosage: 570 MILLIGRAM
     Route: 042
     Dates: start: 20180326
  7. PANITUMUMAB [Suspect]
     Active Substance: PANITUMUMAB
     Dosage: 570 MILLIGRAM
     Route: 042
     Dates: start: 20180725
  8. PANITUMUMAB [Suspect]
     Active Substance: PANITUMUMAB
     Indication: COLORECTAL CANCER METASTATIC
     Dosage: 590 MILLIGRAM
     Route: 042
     Dates: start: 20180122
  9. PANITUMUMAB [Suspect]
     Active Substance: PANITUMUMAB
     Dosage: 570 MILLIGRAM
     Route: 042
     Dates: start: 20180627
  10. PANITUMUMAB [Suspect]
     Active Substance: PANITUMUMAB
     Dosage: 560 MILLIGRAM
     Route: 042
     Dates: start: 20180711
  11. IRINOTECAN [Suspect]
     Active Substance: IRINOTECAN
     Indication: COLORECTAL CANCER METASTATIC
     Dosage: 360 MILLIGRAM
     Route: 065
     Dates: start: 20180122
  12. FLUOROURACIL. [Suspect]
     Active Substance: FLUOROURACIL
     Indication: COLORECTAL CANCER METASTATIC
     Dosage: 4800 MILLIGRAM
     Route: 042
     Dates: start: 20180122
  13. RAMIPRIL BETA COMP [Concomitant]
     Indication: ESSENTIAL HYPERTENSION
     Dosage: 10 MILLIGRAM, QD
     Route: 048
  14. PANITUMUMAB [Suspect]
     Active Substance: PANITUMUMAB
     Dosage: 580 MILLIGRAM
     Route: 042
     Dates: start: 20180312
  15. FOLINIC ACID [Suspect]
     Active Substance: LEUCOVORIN
     Indication: COLORECTAL CANCER METASTATIC
     Dosage: 800 MILLIGRAM
     Route: 065
     Dates: start: 20180122

REACTIONS (4)
  - Vomiting [Recovered/Resolved]
  - Nausea [Recovered/Resolved]
  - Jaundice [Recovering/Resolving]
  - Diarrhoea [Recovered/Resolved]

NARRATIVE: CASE EVENT DATE: 20180731
